FAERS Safety Report 20426256 (Version 1)
Quarter: 2022Q1

REPORT INFORMATION
  Report Type: Spontaneous
  Country: BE (occurrence: BE)
  Receive Date: 20220204
  Receipt Date: 20220204
  Transmission Date: 20220423
  Serious: No
  Sender: FDA-Public Use
  Company Number: BE-EXELIXIS-CABO-21041943

PATIENT
  Sex: Male

DRUGS (2)
  1. CABOMETYX [Suspect]
     Active Substance: CABOZANTINIB S-MALATE
     Indication: Renal neoplasm
     Dosage: 40 MG
  2. CABOMETYX [Suspect]
     Active Substance: CABOZANTINIB S-MALATE
     Dosage: 20 MG

REACTIONS (3)
  - Tongue ulceration [Not Recovered/Not Resolved]
  - Ageusia [Not Recovered/Not Resolved]
  - Hypersensitivity [Not Recovered/Not Resolved]
